FAERS Safety Report 25511514 (Version 1)
Quarter: 2025Q3

REPORT INFORMATION
  Report Type: Spontaneous
  Country: US (occurrence: US)
  Receive Date: 20250703
  Receipt Date: 20250703
  Transmission Date: 20251020
  Serious: No
  Sender: RADIUS PHARM
  Company Number: US-RADIUS HEALTH INC.-2024US007081

PATIENT
  Age: 50 Year
  Sex: Female

DRUGS (2)
  1. TYMLOS [Suspect]
     Active Substance: ABALOPARATIDE
     Indication: Osteoporosis
     Route: 058
     Dates: start: 202408, end: 20240901
  2. VITAMINS NOS [Concomitant]
     Active Substance: VITAMINS
     Indication: Nasopharyngitis
     Route: 065

REACTIONS (6)
  - Swelling [Unknown]
  - Intentional dose omission [Unknown]
  - Hypoaesthesia [Unknown]
  - Arthralgia [Unknown]
  - Unevaluable event [Unknown]
  - Nasopharyngitis [Unknown]

NARRATIVE: CASE EVENT DATE: 20240801
